FAERS Safety Report 26211915 (Version 1)
Quarter: 2025Q4

REPORT INFORMATION
  Report Type: Spontaneous
  Country: US (occurrence: US)
  Receive Date: 20251230
  Receipt Date: 20251230
  Transmission Date: 20260117
  Serious: Yes (Other)
  Sender: RANBAXY
  Company Number: US-SUN PHARMACEUTICAL INDUSTRIES INC-2025R1-543912

PATIENT
  Age: 63 Year
  Sex: Male

DRUGS (1)
  1. ALBUTEROL\IPRATROPIUM BROMIDE [Suspect]
     Active Substance: ALBUTEROL\IPRATROPIUM BROMIDE
     Indication: Prophylaxis
     Dosage: UNK

REACTIONS (1)
  - Lactic acidosis [Recovering/Resolving]
